FAERS Safety Report 10399858 (Version 11)
Quarter: 2015Q3

REPORT INFORMATION
  Report Type: Report from Study
  Country: AR (occurrence: AR)
  Receive Date: 20140821
  Receipt Date: 20150825
  Transmission Date: 20151125
  Serious: Yes (Hospitalization, Other)
  Sender: FDA-Public Use
  Company Number: AR-AMGEN-ARGCT2014031253

PATIENT
  Age: 68 Year
  Sex: Female

DRUGS (20)
  1. NAPROXEN. [Concomitant]
     Active Substance: NAPROXEN
     Dosage: 250 MG (250 MG,QD)
     Route: 048
     Dates: start: 20130215, end: 20130401
  2. OMEPRAZOL                          /00661201/ [Concomitant]
     Active Substance: OMEPRAZOLE
     Dosage: 20 MG (20 MG,QD)
     Route: 048
     Dates: start: 20060511
  3. DOMPERIDONE [Concomitant]
     Active Substance: DOMPERIDONE
     Indication: GASTROOESOPHAGEAL REFLUX DISEASE
     Dosage: 10 MG, 2X/DAY
     Route: 048
     Dates: start: 20121116, end: 20140117
  4. ALPRAZOLAM. [Concomitant]
     Active Substance: ALPRAZOLAM
     Dosage: 0.5 MG,QD
     Route: 048
     Dates: start: 20111226
  5. PREDNISONE. [Concomitant]
     Active Substance: PREDNISONE
     Dosage: 3.75 MG (3.75 MG,DAILY)
     Route: 048
     Dates: start: 20131025, end: 20131105
  6. ETANERCEPT [Suspect]
     Active Substance: ETANERCEPT
     Dosage: 50 MG, WEEKLY (1 IN 1 WK)
     Route: 058
     Dates: start: 20140718
  7. NAPROXEN. [Concomitant]
     Active Substance: NAPROXEN
     Dosage: 750 MG (750 MG,QD)
     Route: 048
     Dates: start: 20120802, end: 20130214
  8. NAPROXEN. [Concomitant]
     Active Substance: NAPROXEN
     Dosage: 500 MG (500 MG,QD)
     Route: 048
     Dates: start: 20130402
  9. PREDNISONE. [Concomitant]
     Active Substance: PREDNISONE
     Dosage: 5 MG (5 MG,DAILY)
     Route: 048
     Dates: start: 20140204, end: 2014
  10. LOSARTAN. [Concomitant]
     Active Substance: LOSARTAN
     Dosage: 50 MG (50 MG,QD)
     Route: 048
     Dates: start: 20090724
  11. ETANERCEPT [Suspect]
     Active Substance: ETANERCEPT
     Indication: RHEUMATOID ARTHRITIS
     Dosage: DATE OF MOST RECENT DOSE PRIOR TO SAE: 04/APR/2014. LAST DOSE OF ETANARCEPT WAS 50 MG (1 IN 1 WK)
     Route: 058
     Dates: start: 20120831
  12. METHOTREXATE [Concomitant]
     Active Substance: METHOTREXATE
     Dosage: 15 MG,1 IN 1 WK
     Route: 048
     Dates: start: 20110810, end: 20130214
  13. PREDNISONE. [Concomitant]
     Active Substance: PREDNISONE
     Dosage: 2.5 MG (2.5 MG,DAILY)
     Route: 048
     Dates: start: 20131206
  14. ETANERCEPT [Suspect]
     Active Substance: ETANERCEPT
     Dosage: 50 MG,1 IN 1 WK
     Route: 058
     Dates: start: 20140627
  15. AMOXICILLIN. [Concomitant]
     Active Substance: AMOXICILLIN
     Indication: PHARYNGITIS
     Dosage: 875 MG, 2X/DAY
     Route: 048
     Dates: start: 20121118, end: 20121125
  16. PREGABALINE [Concomitant]
     Active Substance: PREGABALIN
     Dosage: 75 MG, (1 IN 1 TRIMESTER)
     Route: 048
     Dates: start: 20130429
  17. OMEPRAZOL                          /00661201/ [Concomitant]
     Active Substance: OMEPRAZOLE
     Dosage: 20 MG (20 MG,QD)
     Route: 048
     Dates: start: 20060511
  18. METHOTREXATE [Concomitant]
     Active Substance: METHOTREXATE
     Dosage: 10 MG,1 IN 1 WK
     Route: 048
     Dates: start: 20130215
  19. FOLIC ACID. [Concomitant]
     Active Substance: FOLIC ACID
     Dosage: 5 MG, UNK
     Route: 048
     Dates: start: 20050419
  20. PREDNISONE. [Concomitant]
     Active Substance: PREDNISONE
     Dosage: 5 MG (5 MG,DAILY)
     Route: 048
     Dates: start: 20130910, end: 20131024

REACTIONS (3)
  - Cellulitis staphylococcal [Recovered/Resolved]
  - Skin ulcer [Recovered/Resolved]
  - Cellulitis [Recovered/Resolved]

NARRATIVE: CASE EVENT DATE: 20140408
